FAERS Safety Report 7528695-4 (Version None)
Quarter: 2011Q2

REPORT INFORMATION
  Report Type: 
  Country: None (occurrence: None)
  Receive Date: 20110607
  Receipt Date: 20110526
  Transmission Date: 20111010
  Serious: Yes (Other)
  Sender: FDA-Public Use
  Company Number: US-JNJFOC-20110409835

PATIENT
  Age: 90 Year
  Sex: Female
  Weight: 58.06 kg

DRUGS (4)
  1. BENADRYL [Suspect]
     Route: 048
     Dates: start: 20110426, end: 20110430
  2. SYNTHROID [Concomitant]
     Indication: HYPOTHYROIDISM
     Route: 065
     Dates: start: 20010101
  3. LOTREL [Concomitant]
     Indication: HYPERTENSION
     Route: 065
     Dates: start: 20010101
  4. BENADRYL [Suspect]
     Indication: PRURITUS
     Dosage: ONE TEASPOONFUL  AT NIGHT
     Route: 048
     Dates: start: 20110409, end: 20110413

REACTIONS (4)
  - OFF LABEL USE [None]
  - PRODUCT QUALITY ISSUE [None]
  - AMNESIA [None]
  - FEELING ABNORMAL [None]
